FAERS Safety Report 24747840 (Version 1)
Quarter: 2024Q4

REPORT INFORMATION
  Report Type: Spontaneous
  Country: US (occurrence: None)
  Receive Date: 20241218
  Receipt Date: 20241218
  Transmission Date: 20250114
  Serious: Yes (Hospitalization)
  Sender: Public
  Company Number: None

PATIENT
  Sex: Male

DRUGS (9)
  1. TACROLIMUS [Suspect]
     Active Substance: TACROLIMUS
     Indication: Renal transplant
     Dosage: OTHER QUANTITY : TAKE 1 CAPSULE;?FREQUENCY : DAILY;?
     Route: 048
     Dates: start: 20210908
  2. ASPIRIN [Concomitant]
     Active Substance: ASPIRIN
  3. D2000 ULTRA STRENGTH [Concomitant]
  4. DULOXETINE [Concomitant]
     Active Substance: DULOXETINE
  5. MYCOPHENOLATE MOFETIL [Concomitant]
     Active Substance: MYCOPHENOLATE MOFETIL
  6. OXYCODONE [Concomitant]
     Active Substance: OXYCODONE
  7. ITACROLIMUS [Concomitant]
  8. TACROLIMUS A [Concomitant]
  9. VITAMIN D [Concomitant]
     Active Substance: VITAMIN D NOS

REACTIONS (7)
  - Angina pectoris [None]
  - Abdominal discomfort [None]
  - Dyspepsia [None]
  - Tremor [None]
  - Dyspnoea [None]
  - Constipation [None]
  - Therapy interrupted [None]
